FAERS Safety Report 15239843 (Version 2)
Quarter: 2018Q4

REPORT INFORMATION
  Report Type: Spontaneous
  Country: FR (occurrence: FR)
  Receive Date: 20180803
  Receipt Date: 20181003
  Transmission Date: 20190204
  Serious: Yes (Disabling)
  Sender: FDA-Public Use
  Company Number: FR-MYLANLABS-2018M1057752

PATIENT
  Age: 41 Year
  Sex: Female
  Weight: 90 kg

DRUGS (11)
  1. XGEVA [Suspect]
     Active Substance: DENOSUMAB
     Indication: METASTASES TO BONE
     Dosage: 120 MG, (1 MONTH)
     Route: 042
     Dates: start: 20171226
  2. PACLITAXEL. [Suspect]
     Active Substance: PACLITAXEL
     Indication: BREAST CANCER
     Dosage: 150 MG, QW
     Route: 042
     Dates: start: 20180104, end: 20180411
  3. ACTISKENAN [Suspect]
     Active Substance: MORPHINE SULFATE
     Indication: PRODUCT USED FOR UNKNOWN INDICATION
     Dosage: 10 MG, UNK
     Route: 048
  4. TAMOXIFEN [Suspect]
     Active Substance: TAMOXIFEN
     Indication: BREAST CANCER
     Dosage: 20 MG, QD
     Route: 048
     Dates: start: 20150504
  5. PERJETA [Suspect]
     Active Substance: PERTUZUMAB
     Indication: BREAST CANCER
     Dosage: 840 MG, (1 CYCLICAL)
     Route: 042
     Dates: start: 20180104
  6. DUROGESIC [Suspect]
     Active Substance: FENTANYL
     Dosage: 1 DF, (72 HOURS)
     Route: 023
  7. PERJETA [Suspect]
     Active Substance: PERTUZUMAB
     Dosage: 840 MG, CYCLE
     Route: 042
  8. DUROGESIC [Suspect]
     Active Substance: FENTANYL
     Indication: PRODUCT USED FOR UNKNOWN INDICATION
     Dosage: 1 DF, UNK
     Route: 023
     Dates: start: 20180104
  9. XGEVA [Suspect]
     Active Substance: DENOSUMAB
     Dosage: 120 MG, QMO
     Route: 042
  10. HERCEPTIN [Suspect]
     Active Substance: TRASTUZUMAB
     Indication: BREAST CANCER
     Dosage: 670 MG, (1 CYCLICAL)
     Route: 042
     Dates: start: 20180104
  11. HERCEPTIN [Suspect]
     Active Substance: TRASTUZUMAB
     Dosage: 670 MG, CYCLE
     Route: 042

REACTIONS (1)
  - Corneal disorder [Not Recovered/Not Resolved]

NARRATIVE: CASE EVENT DATE: 20180305
